FAERS Safety Report 5284478-X (Version None)
Quarter: 2007Q1

REPORT INFORMATION
  Report Type: 
  Country: None (occurrence: None)
  Receive Date: 20070330
  Receipt Date: 20070330
  Transmission Date: 20070707
  Serious: Yes (Other)
  Sender: FDA-Public Use
  Company Number: None

PATIENT
  Age: 68 Year
  Sex: Female
  Weight: 43.9989 kg

DRUGS (5)
  1. AVELOX [Suspect]
     Indication: SINUSITIS
     Dosage: 400 MG DAILY ORAL, 3 DOSES ONLY
     Route: 048
  2. ACTONEL [Concomitant]
  3. VITAMINS [Concomitant]
  4. CALCIUM SUPPLEMENT [Concomitant]
  5. PREDNISONE TAB [Concomitant]

REACTIONS (2)
  - DIZZINESS [None]
  - TREMOR [None]
